FAERS Safety Report 11265214 (Version 1)
Quarter: 2015Q3

REPORT INFORMATION
  Report Type: Spontaneous
  Country: US (occurrence: None)
  Receive Date: 20150710
  Receipt Date: 20150710
  Transmission Date: 20151125
  Serious: Yes (Hospitalization)
  Sender: FDA-Public Use
  Company Number: None

PATIENT
  Age: 74 Year
  Sex: Male
  Weight: 103.42 kg

DRUGS (1)
  1. GAZYVA [Suspect]
     Active Substance: OBINUTUZUMAB
     Indication: CHRONIC LYMPHOCYTIC LEUKAEMIA
     Route: 042
     Dates: start: 20150707

REACTIONS (6)
  - Feeling hot [None]
  - Hypotension [None]
  - Nausea [None]
  - Vomiting [None]
  - Infusion related reaction [None]
  - Hyperhidrosis [None]

NARRATIVE: CASE EVENT DATE: 20150707
